FAERS Safety Report 17356625 (Version 1)
Quarter: 2020Q1

REPORT INFORMATION
  Report Type: Spontaneous
  Country: FR (occurrence: FR)
  Receive Date: 20200131
  Receipt Date: 20200131
  Transmission Date: 20200409
  Serious: Yes (Hospitalization)
  Sender: FDA-Public Use
  Company Number: FR-009507513-2001FRA009807

PATIENT
  Age: 85 Year
  Sex: Male
  Weight: 59 kg

DRUGS (1)
  1. CUBICIN [Suspect]
     Active Substance: DAPTOMYCIN
     Indication: STAPHYLOCOCCAL BACTERAEMIA
     Dosage: 12 MILLIGRAM/KILOGRAM
     Route: 041
     Dates: start: 20191218, end: 20200103

REACTIONS (3)
  - Respiratory distress [Recovered/Resolved]
  - Eosinophilia [Recovering/Resolving]
  - Interstitial lung disease [Recovering/Resolving]

NARRATIVE: CASE EVENT DATE: 20200103
